FAERS Safety Report 23356672 (Version 3)
Quarter: 2024Q1

REPORT INFORMATION
  Report Type: Report from Study
  Country: US (occurrence: US)
  Receive Date: 20240102
  Receipt Date: 20240212
  Transmission Date: 20240410
  Serious: No
  Sender: FDA-Public Use
  Company Number: US-JNJFOC-20231216880

PATIENT
  Age: 18 Year
  Sex: Male
  Weight: 79.45 kg

DRUGS (3)
  1. STELARA [Suspect]
     Active Substance: USTEKINUMAB
     Indication: Crohn^s disease
     Route: 058
     Dates: start: 20230801
  2. STELARA [Suspect]
     Active Substance: USTEKINUMAB
     Route: 058
     Dates: start: 20230615
  3. APRISO [Concomitant]
     Active Substance: MESALAMINE
     Indication: Crohn^s disease
     Dosage: 2 CAPSULES 2 DAILY
     Dates: start: 2016

REACTIONS (3)
  - Syringe issue [Unknown]
  - Underdose [Unknown]
  - Stress [Unknown]

NARRATIVE: CASE EVENT DATE: 20230101
